FAERS Safety Report 10017089 (Version 1)
Quarter: 2014Q1

REPORT INFORMATION
  Report Type: Spontaneous
  Country: US (occurrence: US)
  Receive Date: 20140318
  Receipt Date: 20140318
  Transmission Date: 20141002
  Serious: Yes (Hospitalization)
  Sender: FDA-Public Use
  Company Number: US-BIOGENIDEC-2014BI024126

PATIENT
  Age: 50 Year
  Sex: Male

DRUGS (10)
  1. TECFIDERA [Suspect]
     Indication: MULTIPLE SCLEROSIS
     Route: 048
     Dates: start: 20130528
  2. AMITRIPTYLINE HCL [Concomitant]
  3. CLONAZEPAM [Concomitant]
  4. LEVOFLOXACIN [Concomitant]
  5. LORAZEPAM [Concomitant]
  6. LYRICA [Concomitant]
  7. METRONIDAZOLE [Concomitant]
  8. ONDASETRON HCL [Concomitant]
  9. OXYCODONE HCL [Concomitant]
  10. SAVELLA [Concomitant]

REACTIONS (4)
  - Colitis [Recovered/Resolved]
  - Pyrexia [Recovered/Resolved]
  - Large intestine polyp [Recovered/Resolved]
  - Leukocytosis [Recovered/Resolved]
